FAERS Safety Report 20222301 (Version 1)
Quarter: 2021Q4

REPORT INFORMATION
  Report Type: Spontaneous
  Country: US (occurrence: None)
  Receive Date: 20211223
  Receipt Date: 20211223
  Transmission Date: 20220303
  Serious: No
  Sender: FDA-Public Use
  Company Number: None

PATIENT
  Age: 55 Year
  Sex: Male
  Weight: 126 kg

DRUGS (1)
  1. AMIODARONE HYDROCHLORIDE [Suspect]
     Active Substance: AMIODARONE HYDROCHLORIDE
     Indication: Atrial fibrillation
     Dosage: OTHER QUANTITY : 1 TABLET(S);?FREQUENCY : DAILY;?
     Route: 048
     Dates: start: 20211022, end: 20211122

REACTIONS (11)
  - Tremor [None]
  - Cough [None]
  - Nausea [None]
  - Balance disorder [None]
  - Decreased appetite [None]
  - Paraesthesia [None]
  - Sensory loss [None]
  - Dyspnoea [None]
  - Haemoptysis [None]
  - Photophobia [None]
  - Chromaturia [None]

NARRATIVE: CASE EVENT DATE: 20211207
